FAERS Safety Report 8530489-8 (Version None)
Quarter: 2012Q3

REPORT INFORMATION
  Report Type: 
  Country: None (occurrence: None)
  Receive Date: 20120723
  Receipt Date: 20120717
  Transmission Date: 20120928
  Serious: Yes (Death, Disabling, Other)
  Sender: FDA-Public Use
  Company Number: US-CELGENEUS-163-21880-11121829

PATIENT
  Sex: Female
  Weight: 60 kg

DRUGS (12)
  1. REVLIMID [Suspect]
     Indication: MULTIPLE MYELOMA
     Dosage: 5 MILLIGRAM
     Route: 048
     Dates: start: 20110901
  2. VITAMIN D [Concomitant]
     Route: 065
  3. IRON [Concomitant]
     Route: 065
  4. TYLENOL [Concomitant]
     Route: 065
  5. REVLIMID [Suspect]
     Dosage: 10 MILLIGRAM
     Route: 048
     Dates: start: 20111122, end: 20111129
  6. RED BLOOD CELLS [Concomitant]
     Dosage: 2 UNITS
     Route: 041
     Dates: start: 20111117
  7. DECADRON [Concomitant]
     Dosage: 20 MILLIGRAM
     Route: 065
     Dates: start: 20110901
  8. PROTONIX [Concomitant]
     Route: 065
  9. ALEVE [Concomitant]
     Route: 065
  10. ASCORBIC ACID [Concomitant]
     Route: 065
  11. AMLODIPINE BESYLATE [Concomitant]
     Route: 065
  12. ARANESP [Concomitant]
     Route: 065
     Dates: start: 20110719

REACTIONS (6)
  - MULTIPLE MYELOMA [None]
  - ANAEMIA [None]
  - DRUG INEFFECTIVE [None]
  - RENAL FAILURE CHRONIC [None]
  - THROMBOCYTOPENIA [None]
  - DRUG ADMINISTRATION ERROR [None]
